FAERS Safety Report 4732193-0 (Version None)
Quarter: 2005Q3

REPORT INFORMATION
  Report Type: 
  Country: None (occurrence: None)
  Receive Date: 20050721
  Receipt Date: 20050606
  Transmission Date: 20060218
  Serious: No
  Sender: FDA-Public Use
  Company Number: 2005SP001222

PATIENT
  Age: 52 Year
  Sex: Female
  Weight: 80.7403 kg

DRUGS (3)
  1. LUNESTA [Suspect]
     Indication: INSOMNIA
     Dosage: 1 - 2 MG;HS;ORAL
     Route: 048
     Dates: start: 20050604, end: 20050604
  2. LUNESTA [Suspect]
     Indication: INSOMNIA
     Dosage: 1 - 2 MG;HS;ORAL
     Route: 048
     Dates: start: 20050605, end: 20050605
  3. AMBIEN [Concomitant]

REACTIONS (3)
  - DRUG INEFFECTIVE [None]
  - INSOMNIA [None]
  - NIGHTMARE [None]
